FAERS Safety Report 23816340 (Version 4)
Quarter: 2025Q2

REPORT INFORMATION
  Report Type: Report from Study
  Country: CN (occurrence: CN)
  Receive Date: 20240503
  Receipt Date: 20250522
  Transmission Date: 20250716
  Serious: Yes (Other)
  Sender: ABBVIE
  Company Number: CN-ABBVIE-5743123

PATIENT
  Age: 43 Year
  Sex: Male
  Weight: 90 kg

DRUGS (18)
  1. RINVOQ [Suspect]
     Active Substance: UPADACITINIB
     Indication: Dermatitis atopic
     Dosage: FORM STRENGTH: 15 MILLIGRAM
     Route: 048
     Dates: start: 202308, end: 20240802
  2. DUPILUMAB [Concomitant]
     Active Substance: DUPILUMAB
     Indication: Dermatitis atopic
     Route: 058
     Dates: start: 20240408, end: 20240408
  3. DUPILUMAB [Concomitant]
     Active Substance: DUPILUMAB
     Indication: Dermatitis atopic
     Route: 055
     Dates: start: 2015
  4. DIPROSPAN [Concomitant]
     Active Substance: BETAMETHASONE DIPROPIONATE\BETAMETHASONE SODIUM PHOSPHATE
     Indication: Dermatitis atopic
     Route: 055
     Dates: start: 2015
  5. DIPROSPAN [Concomitant]
     Active Substance: BETAMETHASONE DIPROPIONATE\BETAMETHASONE SODIUM PHOSPHATE
     Indication: Dermatitis atopic
     Route: 030
     Dates: start: 202401
  6. LEVOCETIRIZINE DIHYDROCHLORIDE [Concomitant]
     Active Substance: LEVOCETIRIZINE DIHYDROCHLORIDE
     Indication: Dermatitis atopic
     Route: 048
     Dates: start: 20240317
  7. BUDESONIDE\FORMOTEROL FUMARATE [Concomitant]
     Active Substance: BUDESONIDE\FORMOTEROL FUMARATE
     Indication: Asthma
     Route: 045
     Dates: start: 2014
  8. BUDESONIDE\FORMOTEROL FUMARATE [Concomitant]
     Active Substance: BUDESONIDE\FORMOTEROL FUMARATE
     Indication: Asthma
     Dosage: 2 PUFF?BUDENOSIDE FORMOTEROL INHALATION POWDER
     Route: 055
     Dates: start: 20241222, end: 20241229
  9. HALCINONIDE [Concomitant]
     Active Substance: HALCINONIDE
     Indication: Seborrhoeic dermatitis
     Dosage: SOLUTION
     Route: 061
     Dates: start: 20240206, end: 20240312
  10. CLINDAMYCIN HYDROCHLORIDE [Concomitant]
     Active Substance: CLINDAMYCIN HYDROCHLORIDE
     Indication: Seborrhoeic dermatitis
     Dosage: INJECTION
     Route: 065
     Dates: start: 20240206, end: 20240312
  11. ALCOHOL [Concomitant]
     Active Substance: ALCOHOL
     Indication: Seborrhoeic dermatitis
     Dosage: 75% ALCOHOL
     Route: 061
     Dates: start: 20240206, end: 20240312
  12. PIMECROLIMUS [Concomitant]
     Active Substance: PIMECROLIMUS
     Indication: Dermatitis atopic
     Dosage: 1 GRAM
     Route: 061
     Dates: start: 20240408
  13. TRIAMCINOLONE [Concomitant]
     Active Substance: TRIAMCINOLONE
     Indication: Dermatitis atopic
     Route: 048
     Dates: start: 20240206, end: 20240302
  14. FLUCONAZOLE [Concomitant]
     Active Substance: FLUCONAZOLE
     Indication: Seborrhoeic dermatitis
     Route: 061
     Dates: start: 20240206, end: 20240312
  15. CYPROHEPTADINE HYDROCHLORIDE [Concomitant]
     Active Substance: CYPROHEPTADINE HYDROCHLORIDE
     Indication: Dermatitis atopic
     Route: 048
     Dates: start: 20240317, end: 20240331
  16. TACROLIMUS [Concomitant]
     Active Substance: TACROLIMUS
     Indication: Dermatitis atopic
     Dosage: OINTMENT
     Route: 061
     Dates: start: 20241202
  17. KETOCONAZOLE [Concomitant]
     Active Substance: KETOCONAZOLE
     Indication: Dermatitis atopic
     Dosage: WASH
     Dates: start: 20250317, end: 20250324
  18. DINOPROSTONE [Concomitant]
     Active Substance: DINOPROSTONE
     Indication: Dermatitis atopic
     Dosage: DINOPROSTONE CREAM
     Route: 061
     Dates: start: 20250114

REACTIONS (4)
  - Renal failure [Unknown]
  - Hyperlipidaemia [Recovered/Resolved]
  - Hyperlipidaemia [Not Recovered/Not Resolved]
  - Urticaria [Recovered/Resolved]

NARRATIVE: CASE EVENT DATE: 20240317
